FAERS Safety Report 9037227 (Version 1)
Quarter: 2013Q1

REPORT INFORMATION
  Report Type: Spontaneous
  Country: US (occurrence: None)
  Receive Date: 20130123
  Receipt Date: 20130123
  Transmission Date: 20140127
  Serious: Yes (Other)
  Sender: FDA-Public Use
  Company Number: None

PATIENT
  Sex: Male

DRUGS (1)
  1. REMICADE [Suspect]
     Dosage: 700MG Q6WKS IV
     Route: 042
     Dates: start: 20120913, end: 20121129

REACTIONS (1)
  - Hypersensitivity [None]
